FAERS Safety Report 20263660 (Version 4)
Quarter: 2022Q1

REPORT INFORMATION
  Report Type: Spontaneous
  Country: IN (occurrence: IN)
  Receive Date: 20211231
  Receipt Date: 20220228
  Transmission Date: 20220423
  Serious: Yes (Death, Hospitalization, Other)
  Sender: FDA-Public Use
  Company Number: IN-PFIZER INC-202101836848

PATIENT
  Age: 64 Year
  Sex: Male

DRUGS (1)
  1. LORLATINIB [Suspect]
     Active Substance: LORLATINIB
     Dosage: 100 MG, 1X/DAY
     Route: 048
     Dates: start: 20211115, end: 20220211

REACTIONS (9)
  - Death [Fatal]
  - Respiratory disorder [Unknown]
  - Thrombosis [Unknown]
  - Oedema [Unknown]
  - Brain oedema [Unknown]
  - Mental disorder [Unknown]
  - Hallucination [Unknown]
  - Hypokinesia [Unknown]
  - Muscle disorder [Unknown]

NARRATIVE: CASE EVENT DATE: 20220211
